FAERS Safety Report 6557871-2 (Version None)
Quarter: 2010Q1

REPORT INFORMATION
  Report Type: 
  Country: None (occurrence: None)
  Receive Date: 20100128
  Receipt Date: 20100128
  Transmission Date: 20100710
  Serious: No
  Sender: FDA-Public Use
  Company Number: None

PATIENT
  Sex: Female
  Weight: 102 kg

DRUGS (2)
  1. FENTANYL CITRATE [Suspect]
     Indication: EPIDURAL ANAESTHESIA
     Dosage: 2 MCG/ ML IT
     Route: 039
     Dates: start: 20100122, end: 20100122
  2. BUPIVACAINE HCL [Suspect]
     Indication: ANALGESIC THERAPY
     Dosage: 0.125 % IT
     Route: 039

REACTIONS (1)
  - PRODUCT FORMULATION ISSUE [None]
